FAERS Safety Report 8226710-6 (Version None)
Quarter: 2012Q1

REPORT INFORMATION
  Report Type: 
  Country: None (occurrence: None)
  Receive Date: 20120322
  Receipt Date: 20120316
  Transmission Date: 20120608
  Serious: Yes (Hospitalization, Other)
  Sender: FDA-Public Use
  Company Number: DE-BAYER-2011-121900

PATIENT
  Age: 23 Year
  Sex: Female
  Weight: 63 kg

DRUGS (1)
  1. BETASERON [Suspect]
     Indication: MULTIPLE SCLEROSIS
     Dosage: 250 ?G, QOD
     Route: 058
     Dates: start: 20100209, end: 20111203

REACTIONS (4)
  - JAUNDICE [None]
  - ABDOMINAL PAIN [None]
  - MONONUCLEOSIS SYNDROME [None]
  - DECREASED APPETITE [None]
